FAERS Safety Report 5067162-7 (Version None)
Quarter: 2006Q3

REPORT INFORMATION
  Report Type: 
  Country: None (occurrence: None)
  Receive Date: 20060801
  Receipt Date: 20060728
  Transmission Date: 20061208
  Serious: Yes (Other)
  Sender: FDA-Public Use
  Company Number: JP-BOEHRINGER INGELHEIM PHARMACEUTICALS, INC.-2006-BP-08753NB

PATIENT
  Sex: Male
  Weight: 72.2 kg

DRUGS (3)
  1. MICARDIS [Suspect]
     Indication: ESSENTIAL HYPERTENSION
     Route: 048
     Dates: start: 20031106, end: 20041218
  2. ADVAFERON [Suspect]
     Indication: HEPATITIS C
     Route: 058
     Dates: start: 20020122
  3. FLUITRAN [Concomitant]
     Indication: ESSENTIAL HYPERTENSION
     Route: 048
     Dates: start: 20031106

REACTIONS (2)
  - CEREBRAL INFARCTION [None]
  - HYPERKALAEMIA [None]
